FAERS Safety Report 6391511-0 (Version None)
Quarter: 2009Q4

REPORT INFORMATION
  Report Type: 
  Country: None (occurrence: None)
  Receive Date: 20091006
  Receipt Date: 20091006
  Transmission Date: 20100525
  Serious: Yes (Disabling)
  Sender: FDA-Public Use
  Company Number: None

PATIENT
  Age: 80 Year
  Sex: Female
  Weight: 54.4316 kg

DRUGS (1)
  1. LEVAQUIN [Suspect]
     Indication: UPPER RESPIRATORY TRACT INFECTION
     Dosage: 1/DAY, 5 DAYS PO
     Route: 048
     Dates: start: 20090115, end: 20090119

REACTIONS (3)
  - BALANCE DISORDER [None]
  - PAIN [None]
  - TENDON RUPTURE [None]
